FAERS Safety Report 11097638 (Version 1)
Quarter: 2015Q2

REPORT INFORMATION
  Report Type: Spontaneous
  Country: US (occurrence: US)
  Receive Date: 20150507
  Receipt Date: 20150507
  Transmission Date: 20150821
  Serious: No
  Sender: FDA-Public Use
  Company Number: US-009507513-1505USA002352

PATIENT
  Age: 50 Year
  Sex: Female

DRUGS (1)
  1. RAGWITEK [Suspect]
     Active Substance: AMBROSIA ARTEMISIIFOLIA POLLEN
     Indication: SEASONAL ALLERGY
     Dosage: CONCENTRATION 12 AMB A 1-U; DOSE 12 AMB ONCE A DAY
     Route: 060

REACTIONS (1)
  - Herpes zoster [Unknown]
